FAERS Safety Report 13003840 (Version 1)
Quarter: 2016Q4

REPORT INFORMATION
  Report Type: Spontaneous
  Country: JP (occurrence: JP)
  Receive Date: 20161206
  Receipt Date: 20161206
  Transmission Date: 20170207
  Serious: Yes (Death)
  Sender: FDA-Public Use
  Company Number: JP-ASTRAZENECA-2016SF17689

PATIENT
  Age: 32191 Day
  Sex: Male
  Weight: 51 kg

DRUGS (7)
  1. CASODEX [Suspect]
     Active Substance: BICALUTAMIDE
     Indication: PROSTATE CANCER
     Dosage: BICALUTAMIDE, 80 MG DAILY
     Route: 048
     Dates: start: 20160914, end: 20161020
  2. URSO [Concomitant]
     Active Substance: URSODIOL
     Indication: CHOLELITHIASIS
     Route: 048
     Dates: start: 20130523, end: 20161020
  3. ZOLADEX LA [Concomitant]
     Active Substance: GOSERELIN ACETATE
     Indication: PROSTATE CANCER
     Route: 058
     Dates: start: 20140424
  4. CASODEX [Suspect]
     Active Substance: BICALUTAMIDE
     Indication: PROSTATE CANCER
     Route: 048
     Dates: start: 20160819, end: 20160913
  5. BERIZYM [Concomitant]
     Active Substance: CELLULASE\DIASTASE\LIPASE
     Indication: GASTRIC CANCER
     Route: 048
     Dates: start: 20070707, end: 20161020
  6. POLAPREZINC [Concomitant]
     Active Substance: POLAPREZINC
     Indication: GASTRIC CANCER
     Route: 048
     Dates: start: 20140904, end: 20161020
  7. CASODEX [Suspect]
     Active Substance: BICALUTAMIDE
     Indication: PROSTATE CANCER
     Route: 048
     Dates: start: 20110929, end: 20111006

REACTIONS (3)
  - Interstitial lung disease [Fatal]
  - Acute respiratory failure [Fatal]
  - Product substitution issue [Unknown]

NARRATIVE: CASE EVENT DATE: 20160914
